FAERS Safety Report 12563097 (Version 3)
Quarter: 2016Q3

REPORT INFORMATION
  Report Type: Spontaneous
  Country: FR (occurrence: FR)
  Receive Date: 20160715
  Receipt Date: 20160926
  Transmission Date: 20161109
  Serious: Yes (Other)
  Sender: FDA-Public Use
  Company Number: FR-MYLANLABS-2016M1029368

PATIENT

DRUGS (3)
  1. SOLUPRED                           /00016201/ [Concomitant]
     Active Substance: PREDNISOLONE
     Indication: ANAPHYLACTIC REACTION
     Dosage: UNK
     Dates: start: 201605
  2. EPIPEN [Suspect]
     Active Substance: EPINEPHRINE
     Indication: ANAPHYLACTIC REACTION
     Dosage: 0.15 MG, UNK
     Dates: start: 201605
  3. AERIUS [Concomitant]
     Active Substance: DESLORATADINE
     Indication: ANAPHYLACTIC REACTION
     Dosage: UNK
     Dates: start: 201605

REACTIONS (2)
  - Device failure [Recovered/Resolved]
  - Needle issue [Unknown]

NARRATIVE: CASE EVENT DATE: 201605
